FAERS Safety Report 14930840 (Version 1)
Quarter: 2018Q2

REPORT INFORMATION
  Report Type: Spontaneous
  Country: FR (occurrence: FR)
  Receive Date: 20180524
  Receipt Date: 20180524
  Transmission Date: 20180711
  Serious: Yes (Other)
  Sender: FDA-Public Use
  Company Number: FR-MERCK KGAA-2048362

PATIENT
  Age: 45 Year
  Sex: Female

DRUGS (1)
  1. NOVOTHYROX [Suspect]
     Active Substance: LEVOTHYROXINE SODIUM
     Indication: AUTOIMMUNE THYROIDITIS

REACTIONS (22)
  - Polyarthritis [Recovering/Resolving]
  - C-reactive protein increased [None]
  - Feeling cold [None]
  - Alopecia [Not Recovered/Not Resolved]
  - Muscle spasms [None]
  - Amnesia [None]
  - Fear of disease [None]
  - Self esteem decreased [None]
  - Pain [Recovering/Resolving]
  - Feeling abnormal [None]
  - Weight increased [None]
  - Middle insomnia [None]
  - Fatigue [Recovering/Resolving]
  - Apathy [None]
  - Diarrhoea [None]
  - Headache [Recovering/Resolving]
  - Dyspepsia [None]
  - Gastrooesophageal reflux disease [None]
  - Malaise [None]
  - Insomnia [Not Recovered/Not Resolved]
  - Mood swings [None]
  - Weight decreased [None]

NARRATIVE: CASE EVENT DATE: 20170523
